FAERS Safety Report 5092805-1 (Version None)
Quarter: 2006Q3

REPORT INFORMATION
  Report Type: 
  Country: None (occurrence: None)
  Receive Date: 20060828
  Receipt Date: 20060815
  Transmission Date: 20061208
  Serious: Yes (Hospitalization, Disabling)
  Sender: FDA-Public Use
  Company Number: GBWYE682611AUG06

PATIENT
  Age: 59 Year
  Sex: Male

DRUGS (2)
  1. EFFEXOR XR [Suspect]
     Dosage: 37.5 MG, FREQUENCY UNKNOWN; ORAL; 75 MG 1X PER 1 DAY; ORAL
     Route: 048
     Dates: start: 20040922, end: 20060809
  2. EFFEXOR XR [Suspect]
     Dosage: 37.5 MG, FREQUENCY UNKNOWN; ORAL; 75 MG 1X PER 1 DAY; ORAL
     Route: 048
     Dates: start: 20060810

REACTIONS (6)
  - BLOOD PRESSURE INCREASED [None]
  - DIZZINESS [None]
  - HEAD INJURY [None]
  - HEART RATE IRREGULAR [None]
  - VENTRICULAR ARRHYTHMIA [None]
  - VERTIGO POSITIONAL [None]
